FAERS Safety Report 4971127-0 (Version None)
Quarter: 2006Q1

REPORT INFORMATION
  Report Type: 
  Country: None (occurrence: None)
  Receive Date: 20060227
  Receipt Date: 20050328
  Transmission Date: 20060701
  Serious: Yes (Life-Threatening, Hospitalization, Disabling, Other)
  Sender: FDA-Public Use
  Company Number: WAES 0503USA04903

PATIENT
  Age: 85 Year
  Sex: Female
  Weight: 62.1428 kg

DRUGS (14)
  1. ZOCOR [Suspect]
     Indication: BLOOD CHOLESTEROL INCREASED
     Dosage: 40 MG/DAILY/PO
     Route: 048
     Dates: start: 20050302, end: 20050323
  2. ZETIA [Suspect]
     Dosage: 10 MG/PO
     Route: 048
  3. CATAPRES [Concomitant]
  4. COUMADIN [Concomitant]
  5. DIOVAN [Concomitant]
  6. ELAVIL [Concomitant]
  7. IMDUR [Concomitant]
  8. LASIX [Concomitant]
  9. NORVASC [Concomitant]
  10. ZYLOPRIM [Concomitant]
  11. ASPIRIN [Concomitant]
  12. FOLIC ACID [Concomitant]
  13. INSULIN, ISOPHANE [Concomitant]
  14. IRON (UNSPECIFIED) [Concomitant]

REACTIONS (2)
  - RENAL FAILURE [None]
  - RHABDOMYOLYSIS [None]
